FAERS Safety Report 5319307-9 (Version None)
Quarter: 2007Q2

REPORT INFORMATION
  Report Type: 
  Country: None (occurrence: None)
  Receive Date: 20070508
  Receipt Date: 20070426
  Transmission Date: 20071010
  Serious: Yes (Life-Threatening)
  Sender: FDA-Public Use
  Company Number: JP-PFIZER INC-2007014232

PATIENT
  Sex: Male

DRUGS (5)
  1. LIPITOR [Suspect]
     Indication: HYPERCHOLESTEROLAEMIA
     Dosage: DAILY DOSE:10MG
     Route: 048
     Dates: start: 20051213, end: 20070219
  2. URINORM [Suspect]
     Indication: GOUT
     Dosage: DAILY DOSE:50MG
     Route: 048
     Dates: start: 19971202, end: 20070219
  3. LOXONIN [Concomitant]
     Indication: OSTEOARTHRITIS
     Dosage: DAILY DOSE:180MG
     Route: 048
     Dates: start: 20060912, end: 20061022
  4. SELBEX [Concomitant]
     Indication: OSTEOARTHRITIS
     Dosage: DAILY DOSE:1.5GRAM
     Route: 048
     Dates: start: 20060912, end: 20061022
  5. HYPEN [Concomitant]
     Indication: OSTEOARTHRITIS
     Dosage: DAILY DOSE:200MG
     Route: 048
     Dates: start: 20061013, end: 20061222

REACTIONS (1)
  - AGRANULOCYTOSIS [None]
